FAERS Safety Report 17432718 (Version 3)
Quarter: 2020Q2

REPORT INFORMATION
  Report Type: Spontaneous
  Country: JP (occurrence: JP)
  Receive Date: 20200218
  Receipt Date: 20200420
  Transmission Date: 20200713
  Serious: Yes (Other)
  Sender: FDA-Public Use
  Company Number: JP-009507513-2002JPN005898

PATIENT
  Age: 27 Year
  Sex: Female

DRUGS (6)
  1. SULFAMETHOXAZOLE (+) TRIMETHOPRIM [Suspect]
     Active Substance: SULFAMETHOXAZOLE\TRIMETHOPRIM
     Indication: STAPHYLOCOCCAL INFECTION
     Dosage: SINGLE STRENGTH, 2 TABLETS TWICE DAILY ON DAY 27-32
  2. MINOCYCLINE [Suspect]
     Active Substance: MINOCYCLINE HYDROCHLORIDE
     Indication: STAPHYLOCOCCAL INFECTION
     Dosage: 100MG TWICE DAILY ON DAY 62-68
  3. TEICOPLANIN [Suspect]
     Active Substance: TEICOPLANIN
     Indication: STAPHYLOCOCCAL INFECTION
     Dosage: 15-20 MICROGRAM/ML ON DAY 42-54
  4. DOXYCYCLINE. [Suspect]
     Active Substance: DOXYCYCLINE
     Indication: STAPHYLOCOCCAL INFECTION
     Dosage: 100MG, TWICE DAILY ON DAY 34-36 AND DAY 57-61
  5. VANCOMYCIN [Suspect]
     Active Substance: VANCOMYCIN
     Indication: STAPHYLOCOCCAL INFECTION
     Dosage: 15-20 MICROGRAM/ML, ON DAY 14-23 AND DAY 33-44
  6. DAPTOMYCIN. [Suspect]
     Active Substance: DAPTOMYCIN
     Indication: STAPHYLOCOCCAL INFECTION
     Dosage: 10 MG/KG EVERY 24 HOURS ON DAY 22 TO 32

REACTIONS (4)
  - Skin lesion [Recovered/Resolved]
  - Pyrexia [Unknown]
  - Nausea [Unknown]
  - Pancytopenia [Unknown]
